FAERS Safety Report 8998300 (Version 1)
Quarter: 2013Q1

REPORT INFORMATION
  Report Type: Spontaneous
  Country: GB (occurrence: GB)
  Receive Date: 20130104
  Receipt Date: 20130104
  Transmission Date: 20140127
  Serious: Yes (Hospitalization)
  Sender: FDA-Public Use
  Company Number: PHFR2012GB006663

PATIENT
  Sex: Female

DRUGS (1)
  1. CLOZARIL [Suspect]
     Indication: SCHIZOPHRENIA
     Route: 048
     Dates: start: 20120528

REACTIONS (4)
  - Chronic obstructive pulmonary disease [Unknown]
  - Fall [Unknown]
  - Hypophagia [Unknown]
  - Neutrophil count increased [Unknown]
